FAERS Safety Report 15785340 (Version 4)
Quarter: 2019Q3

REPORT INFORMATION
  Report Type: Spontaneous
  Country: US (occurrence: US)
  Receive Date: 20190103
  Receipt Date: 20190806
  Transmission Date: 20191004
  Serious: Yes (Other)
  Sender: FDA-Public Use
  Company Number: US-PFIZER INC-2019002127

PATIENT
  Age: 81 Year
  Sex: Female
  Weight: 58 kg

DRUGS (1)
  1. XELJANZ [Suspect]
     Active Substance: TOFACITINIB CITRATE
     Indication: ARTHRITIS
     Dosage: 5 MG, TWICE A DAY
     Route: 048

REACTIONS (11)
  - Memory impairment [Unknown]
  - Malaise [Unknown]
  - Gastrointestinal disorder [Unknown]
  - Body height decreased [Unknown]
  - Back pain [Unknown]
  - Abdominal pain upper [Unknown]
  - Herpes zoster [Unknown]
  - Dementia [Unknown]
  - Drug ineffective [Unknown]
  - Constipation [Unknown]
  - Bowel movement irregularity [Unknown]

NARRATIVE: CASE EVENT DATE: 20180504
